FAERS Safety Report 20484335 (Version 1)
Quarter: 2022Q1

REPORT INFORMATION
  Report Type: Report from Study
  Country: CR (occurrence: CR)
  Receive Date: 20220217
  Receipt Date: 20220217
  Transmission Date: 20220423
  Serious: Yes (Other)
  Sender: FDA-Public Use
  Company Number: CR-NOVARTISPH-NVSC2022CR036275

PATIENT
  Age: 84 Year
  Sex: Male

DRUGS (2)
  1. DIOVAN [Suspect]
     Active Substance: VALSARTAN
     Indication: Product used for unknown indication
     Dosage: 320 MG, STARTED 5 YEARS AGO
     Route: 065
  2. DIOVAN [Suspect]
     Active Substance: VALSARTAN
     Dosage: 160 MG, STARTED 6 MONTHS AGO
     Route: 065

REACTIONS (3)
  - Senile dementia [Unknown]
  - Syncope [Recovering/Resolving]
  - Hypotension [Recovering/Resolving]
